FAERS Safety Report 24927211 (Version 2)
Quarter: 2025Q3

REPORT INFORMATION
  Report Type: Report from Study
  Country: US (occurrence: US)
  Receive Date: 20250205
  Receipt Date: 20250826
  Transmission Date: 20251021
  Serious: Yes (Hospitalization)
  Sender: AMNEAL
  Company Number: US-AMNEAL PHARMACEUTICALS-2025-AMRX-00381

PATIENT
  Age: 73 Year
  Sex: Female

DRUGS (5)
  1. CARBIDOPA\LEVODOPA [Suspect]
     Active Substance: CARBIDOPA\LEVODOPA
     Indication: Product used for unknown indication
     Dosage: 23.75/95MG, 3 CAPSULES, 3 /DAY
     Route: 048
  2. CARBIDOPA\LEVODOPA [Suspect]
     Active Substance: CARBIDOPA\LEVODOPA
     Dosage: 23.75/95MG, 4 CAPSULES, 3 /DAY
     Route: 048
     Dates: start: 20231011
  3. CARBIDOPA\LEVODOPA [Suspect]
     Active Substance: CARBIDOPA\LEVODOPA
     Dosage: 23.75/95MG, 3 CAPSULES, 3 /DAY
     Route: 048
     Dates: start: 20250122
  4. CARBIDOPA\LEVODOPA [Suspect]
     Active Substance: CARBIDOPA\LEVODOPA
     Dosage: 23.75/95MG, 4 CAPSULES, 3 /DAY
     Route: 048
     Dates: end: 20250806
  5. NAPROXEN [Suspect]
     Active Substance: NAPROXEN
     Indication: Arthropathy
     Route: 065

REACTIONS (2)
  - Adverse drug reaction [Unknown]
  - Tremor [Unknown]

NARRATIVE: CASE EVENT DATE: 20250806
